FAERS Safety Report 5926653-4 (Version None)
Quarter: 2008Q4

REPORT INFORMATION
  Report Type: 
  Country: None (occurrence: None)
  Receive Date: 20081016
  Receipt Date: 20081013
  Transmission Date: 20090506
  Serious: Yes (Death)
  Sender: FDA-Public Use
  Company Number: 2008-183017-NL

PATIENT
  Sex: Female

DRUGS (3)
  1. ETONOGESTREL [Suspect]
     Route: 064
     Dates: start: 20060504, end: 20060711
  2. PYRIDOXINE HCL [Concomitant]
  3. RIFINAH [Concomitant]

REACTIONS (5)
  - MATERNAL DRUGS AFFECTING FOETUS [None]
  - NEONATAL RESPIRATORY DISTRESS SYNDROME [None]
  - PNEUMOTHORAX [None]
  - POST PROCEDURAL COMPLICATION [None]
  - PREMATURE BABY [None]
